FAERS Safety Report 12305375 (Version 1)
Quarter: 2016Q2

REPORT INFORMATION
  Report Type: Spontaneous
  Country: DE (occurrence: DE)
  Receive Date: 20160426
  Receipt Date: 20160426
  Transmission Date: 20160815
  Serious: Yes (Other)
  Sender: FDA-Public Use
  Company Number: DE-GLAXOSMITHKLINE-DE2016GSK051598

PATIENT
  Age: 39 Year
  Sex: Female

DRUGS (1)
  1. NICOTINELL [Suspect]
     Active Substance: NICOTINE
     Indication: SMOKING CESSATION THERAPY
     Dosage: 25 MG, UNK
     Dates: start: 20160411, end: 20160412

REACTIONS (6)
  - Nausea [Recovering/Resolving]
  - Tremor [Recovering/Resolving]
  - Cardiovascular disorder [Recovering/Resolving]
  - Product quality issue [Unknown]
  - Shock symptom [Recovering/Resolving]
  - Accidental overdose [Unknown]

NARRATIVE: CASE EVENT DATE: 20160411
